FAERS Safety Report 8456145 (Version 3)
Quarter: 2013Q4

REPORT INFORMATION
  Report Type: Spontaneous
  Country: US (occurrence: US)
  Receive Date: 20120313
  Receipt Date: 20131030
  Transmission Date: 20140711
  Serious: Yes (Other)
  Sender: FDA-Public Use
  Company Number: US-ROCHE-793914

PATIENT
  Sex: Male
  Weight: 88.53 kg

DRUGS (2)
  1. ACCUTANE [Suspect]
     Indication: ACNE
     Route: 065
     Dates: start: 1989, end: 1990
  2. ACCUTANE [Suspect]
     Route: 065
     Dates: start: 1990, end: 1991

REACTIONS (4)
  - Colitis ulcerative [Unknown]
  - Inflammatory bowel disease [Unknown]
  - Depression [Unknown]
  - Large intestine polyp [Unknown]
